FAERS Safety Report 9199772 (Version 1)
Quarter: 2013Q1

REPORT INFORMATION
  Report Type: Spontaneous
  Country: US (occurrence: None)
  Receive Date: 20130328
  Receipt Date: 20130328
  Transmission Date: 20140127
  Serious: Yes (Other)
  Sender: FDA-Public Use
  Company Number: None

PATIENT
  Age: 50 Year
  Sex: Female
  Weight: 79.38 kg

DRUGS (2)
  1. TOPIRAMATE [Suspect]
     Indication: DEPRESSION
     Dates: start: 20130207, end: 20130327
  2. TOMIRAMATE 100MG [Suspect]

REACTIONS (5)
  - Anger [None]
  - Anger [None]
  - Abnormal behaviour [None]
  - Dyspepsia [None]
  - Product substitution issue [None]
